FAERS Safety Report 17869050 (Version 3)
Quarter: 2020Q3

REPORT INFORMATION
  Report Type: Report from Study
  Country: None (occurrence: US)
  Receive Date: 20200608
  Receipt Date: 20200821
  Transmission Date: 20201103
  Serious: Yes (Other)
  Sender: FDA-Public Use
  Company Number: US-ABBVIE-20K-163-3388716-00

PATIENT
  Age: 42 Year
  Sex: Female

DRUGS (3)
  1. HUMIRA [Suspect]
     Active Substance: ADALIMUMAB
     Dosage: CITRATE FREE
     Route: 058
  2. HUMIRA [Suspect]
     Active Substance: ADALIMUMAB
     Route: 058
  3. HUMIRA [Suspect]
     Active Substance: ADALIMUMAB
     Indication: RHEUMATOID ARTHRITIS
     Dosage: CITRATE FREE
     Route: 058

REACTIONS (15)
  - Sinus disorder [Not Recovered/Not Resolved]
  - Systemic lupus erythematosus [Recovered/Resolved]
  - Decreased appetite [Recovering/Resolving]
  - Nasal congestion [Recovering/Resolving]
  - Irritability [Recovered/Resolved]
  - Paranasal sinus discomfort [Not Recovered/Not Resolved]
  - Oropharyngeal pain [Recovering/Resolving]
  - Fatigue [Recovered/Resolved]
  - Headache [Not Recovered/Not Resolved]
  - Back pain [Recovering/Resolving]
  - Pruritus [Not Recovered/Not Resolved]
  - Paranasal sinus hyposecretion [Not Recovered/Not Resolved]
  - Hypersensitivity [Unknown]
  - Diarrhoea [Recovering/Resolving]
  - Sinus congestion [Recovered/Resolved]

NARRATIVE: CASE EVENT DATE: 20200501
